FAERS Safety Report 4950773-4 (Version None)
Quarter: 2006Q1

REPORT INFORMATION
  Report Type: 
  Country: None (occurrence: None)
  Receive Date: 20060321
  Receipt Date: 20060321
  Transmission Date: 20060701
  Serious: No
  Sender: FDA-Public Use
  Company Number: None

PATIENT
  Age: 53 Year
  Sex: Female
  Weight: 68.0396 kg

DRUGS (2)
  1. ZICAM NASAL SWABS MATRIXX INIATIVES, INC. [Suspect]
     Indication: NASOPHARYNGITIS
     Dosage: 1 SWAB SEVERAL TIMES DAY
     Dates: start: 20010801, end: 20010807
  2. ZICAM NASAL SWABS MATRIXX INIATIVES, INC. [Suspect]
     Indication: NASOPHARYNGITIS
     Dosage: 1 SWAB SEVERAL TIMES DAY
     Dates: start: 20040201, end: 20040207

REACTIONS (2)
  - AGEUSIA [None]
  - ANOSMIA [None]
